FAERS Safety Report 10490231 (Version 2)
Quarter: 2014Q4

REPORT INFORMATION
  Report Type: Spontaneous
  Country: FR (occurrence: FR)
  Receive Date: 20141002
  Receipt Date: 20141010
  Transmission Date: 20150528
  Serious: Yes (Hospitalization, Other)
  Sender: FDA-Public Use
  Company Number: FR-INCYTE CORPORATION-2014IN002764

PATIENT
  Age: 4 Year
  Sex: Female

DRUGS (5)
  1. SOLUPRED                           /00016217/ [Concomitant]
     Dosage: 5 MG, QD
  2. BACTRIM [Concomitant]
     Active Substance: SULFAMETHOXAZOLE\TRIMETHOPRIM
     Dosage: 200 MG, QD
     Route: 048
  3. UN ALFA [Concomitant]
     Dosage: 5 DRP, DAILY
     Route: 048
  4. JAKAFI [Suspect]
     Active Substance: RUXOLITINIB
     Indication: INTERFERON ALPHA LEVEL INCREASED
     Dosage: 5 MG, BID
     Route: 065
     Dates: start: 20140526, end: 20140815
  5. JAKAFI [Suspect]
     Active Substance: RUXOLITINIB
     Indication: OFF LABEL USE
     Dosage: 2.5 MG, BID
     Route: 065
     Dates: start: 20140918

REACTIONS (2)
  - Intracranial pressure increased [Recovering/Resolving]
  - Papilloedema [Recovering/Resolving]

NARRATIVE: CASE EVENT DATE: 20140807
